FAERS Safety Report 24861385 (Version 1)
Quarter: 2025Q1

REPORT INFORMATION
  Report Type: Spontaneous
  Country: US (occurrence: US)
  Receive Date: 20250120
  Receipt Date: 20250120
  Transmission Date: 20250409
  Serious: Yes (Death, Other)
  Sender: SPECGX
  Company Number: US-SPECGX-T202500319

PATIENT
  Age: 1 Month
  Sex: Female

DRUGS (1)
  1. OXYCODONE [Suspect]
     Active Substance: OXYCODONE
     Indication: Product used for unknown indication
     Route: 065

REACTIONS (6)
  - Toxicity to various agents [Fatal]
  - Accidental exposure to product by child [Fatal]
  - Acute lung injury [Unknown]
  - Acute respiratory distress syndrome [Unknown]
  - Bradypnoea [Unknown]
  - Cardiac arrest [Unknown]
